FAERS Safety Report 16071407 (Version 2)
Quarter: 2022Q2

REPORT INFORMATION
  Report Type: Spontaneous
  Country: US (occurrence: US)
  Receive Date: 20190314
  Receipt Date: 20220422
  Transmission Date: 20220721
  Serious: No
  Sender: FDA-Public Use
  Company Number: US-PFIZER INC-2019102980

PATIENT
  Age: 61 Year
  Sex: Female
  Weight: 52.154 kg

DRUGS (1)
  1. EFFEXOR XR [Suspect]
     Active Substance: VENLAFAXINE HYDROCHLORIDE
     Dosage: UNK

REACTIONS (3)
  - Mental status changes [Unknown]
  - Enuresis [Unknown]
  - Drug hypersensitivity [Unknown]
